FAERS Safety Report 24266532 (Version 2)
Quarter: 2024Q4

REPORT INFORMATION
  Report Type: Report from Study
  Country: DE (occurrence: DE)
  Receive Date: 20240830
  Receipt Date: 20241030
  Transmission Date: 20250115
  Serious: Yes (Hospitalization)
  Sender: EMD SERONO INC
  Company Number: DE-MedicalSyn-Clarion152440

PATIENT
  Age: 64 Year
  Sex: Female
  Weight: 69 kg

DRUGS (24)
  1. CLADRIBINE [Suspect]
     Active Substance: CLADRIBINE
     Indication: Relapsing-remitting multiple sclerosis
     Dosage: YEAR ONE MONTH ONE THERAPY
     Route: 048
     Dates: start: 20201102, end: 20201106
  2. CLADRIBINE [Suspect]
     Active Substance: CLADRIBINE
     Dosage: YEAR ONE MONTH TWO THERAPY
     Route: 048
     Dates: start: 20201130, end: 20201204
  3. CLADRIBINE [Suspect]
     Active Substance: CLADRIBINE
     Dosage: YEAR TWO MONTH ONE THERAPY
     Route: 048
     Dates: start: 20211115, end: 20211119
  4. CLADRIBINE [Suspect]
     Active Substance: CLADRIBINE
     Dosage: YEAR TWO MONTH TWO THERAPY
     Route: 048
     Dates: start: 20211213, end: 20211217
  5. COMIRNATY [Concomitant]
     Indication: COVID-19 immunisation
     Dosage: DOSE 1
     Route: 030
     Dates: start: 20210624, end: 20210624
  6. COMIRNATY [Concomitant]
     Dosage: DOSE 2
     Route: 030
     Dates: start: 20210805, end: 20210805
  7. COMIRNATY [Concomitant]
     Dosage: DOSE 3
     Route: 030
     Dates: start: 20220210, end: 20220210
  8. METHOCARBAMOL [Concomitant]
     Active Substance: METHOCARBAMOL
     Indication: Back pain
     Route: 048
     Dates: start: 202112, end: 202112
  9. ASPIRIN [Concomitant]
     Active Substance: ASPIRIN
     Indication: Coronary artery disease
     Route: 048
     Dates: start: 202202
  10. DOXEPIN [Concomitant]
     Active Substance: DOXEPIN
     Indication: Depression
     Route: 048
  11. CINNARIZINE\DIMENHYDRINATE [Concomitant]
     Active Substance: CINNARIZINE\DIMENHYDRINATE
     Indication: Vertigo
     Route: 048
     Dates: start: 202111, end: 202111
  12. POTASSIUM IODIDE [Concomitant]
     Active Substance: POTASSIUM IODIDE
     Indication: Goitre
     Route: 048
  13. ROSUVASTATIN [Concomitant]
     Active Substance: ROSUVASTATIN
     Indication: Hyperlipidaemia
     Route: 048
     Dates: start: 202211
  14. ROSUVASTATIN [Concomitant]
     Active Substance: ROSUVASTATIN
     Indication: Coronary artery disease
  15. CHOLECALCIFEROL [Concomitant]
     Active Substance: CHOLECALCIFEROL
     Indication: Vitamin D deficiency
     Route: 048
  16. CHOLECALCIFEROL [Concomitant]
     Active Substance: CHOLECALCIFEROL
     Indication: Nutritional supplementation
  17. INFLUENZA VIRUS VACCINE QUADRIVALENT TYPE A+B [Concomitant]
     Active Substance: INFLUENZA VIRUS VACCINE QUADRIVALENT TYPE A+B
     Indication: Influenza immunisation
     Route: 030
     Dates: start: 20211108, end: 20211108
  18. EZETIMIBE [Concomitant]
     Active Substance: EZETIMIBE
     Indication: Hyperlipidaemia
     Route: 048
     Dates: start: 202211
  19. EZETIMIBE [Concomitant]
     Active Substance: EZETIMIBE
     Indication: Coronary artery disease
  20. FOLIC ACID [Concomitant]
     Active Substance: FOLIC ACID
     Indication: Folate deficiency
     Route: 048
     Dates: start: 202211, end: 202302
  21. FOLIC ACID [Concomitant]
     Active Substance: FOLIC ACID
     Indication: Nutritional supplementation
  22. PANTOPRAZOLE [Concomitant]
     Active Substance: PANTOPRAZOLE
     Indication: Haematemesis
     Route: 048
     Dates: start: 202211
  23. PRASUGREL [Concomitant]
     Active Substance: PRASUGREL
     Indication: Coronary artery disease
     Route: 048
     Dates: start: 202211
  24. METOPROLOL [Concomitant]
     Active Substance: METOPROLOL
     Indication: Coronary artery disease

REACTIONS (1)
  - Pancreatic neoplasm [Unknown]

NARRATIVE: CASE EVENT DATE: 20240701
